FAERS Safety Report 11307442 (Version 4)
Quarter: 2016Q2

REPORT INFORMATION
  Report Type: Report from Study
  Country: BR (occurrence: BR)
  Receive Date: 20150723
  Receipt Date: 20160405
  Transmission Date: 20160815
  Serious: Yes (Hospitalization, Other)
  Sender: FDA-Public Use
  Company Number: PHHY2015BR086382

PATIENT
  Age: 68 Year
  Sex: Female
  Weight: 55 kg

DRUGS (6)
  1. ESCITALOPRAM [Concomitant]
     Active Substance: ESCITALOPRAM OXALATE
     Indication: DEPRESSION
     Dosage: 1 DF, QD
     Route: 048
  2. FRONTAL [Concomitant]
     Active Substance: ALPRAZOLAM
     Indication: PRODUCT USED FOR UNKNOWN INDICATION
     Dosage: UNK, QD
     Route: 065
  3. GILENYA [Suspect]
     Active Substance: FINGOLIMOD HYDROCHLORIDE
     Indication: MULTIPLE SCLEROSIS
     Dosage: 1 DF, QD
     Route: 048
     Dates: start: 201410, end: 20160309
  4. SOMALGIN [Concomitant]
     Active Substance: ASPIRIN\DIHYDROXYALUMINUM AMINOACETATE ANHYDROUS\MAGNESIUM CARBONATE
     Indication: PRODUCT USED FOR UNKNOWN INDICATION
     Dosage: UNK UNK, QD
     Route: 065
  5. ARADOIS [Concomitant]
     Active Substance: LOSARTAN POTASSIUM
     Indication: PRODUCT USED FOR UNKNOWN INDICATION
     Dosage: UNK UNK, QD
     Route: 065
  6. SEROQUEL [Concomitant]
     Active Substance: QUETIAPINE FUMARATE
     Indication: PRODUCT USED FOR UNKNOWN INDICATION
     Dosage: 100 MG, QD
     Route: 065

REACTIONS (22)
  - Cataract [Not Recovered/Not Resolved]
  - Gamma-glutamyltransferase abnormal [Recovered/Resolved with Sequelae]
  - Alanine aminotransferase abnormal [Unknown]
  - Influenza [Recovering/Resolving]
  - Blood triglycerides abnormal [Recovered/Resolved with Sequelae]
  - Rash generalised [Recovering/Resolving]
  - Oedema peripheral [Recovering/Resolving]
  - Rhinorrhoea [Recovering/Resolving]
  - Viral infection [Recovering/Resolving]
  - Memory impairment [Not Recovered/Not Resolved]
  - Dizziness [Recovering/Resolving]
  - Loss of consciousness [Recovered/Resolved]
  - Aspartate aminotransferase abnormal [Unknown]
  - Asthenia [Recovering/Resolving]
  - Cerebral disorder [Recovered/Resolved]
  - Balance disorder [Recovering/Resolving]
  - Psychotic disorder [Recovered/Resolved]
  - Amnesia [Recovered/Resolved]
  - Protein total increased [Unknown]
  - Thrombocytopenia [Recovering/Resolving]
  - Confusional state [Recovered/Resolved]
  - Leukopenia [Recovering/Resolving]

NARRATIVE: CASE EVENT DATE: 201501
